FAERS Safety Report 4635936-X (Version None)
Quarter: 2005Q2

REPORT INFORMATION
  Report Type: 
  Country: None (occurrence: None)
  Receive Date: 20050413
  Receipt Date: 20050401
  Transmission Date: 20051028
  Serious: Yes (Other)
  Sender: FDA-Public Use
  Company Number: 163-20785-04100152

PATIENT
  Sex: Male

DRUGS (2)
  1. THALOMID [Suspect]
     Indication: PROSTATIC INTRAEPITHELIAL NEOPLASIA
     Dosage: 200 MG, DAILY, ORAL
     Route: 048
     Dates: start: 20020114
  2. LEUPROLIDE (L) OR GOSERELIN (G) [Suspect]
     Indication: PROSTATIC INTRAEPITHELIAL NEOPLASIA
     Dosage: (L) 7.5 MG IM OR (G) 3.6 MG SC EVERY 28 DAYS FOR 6 CYCLES OR (L) 22.5 MG IM OR (G) 10.8 MG SC EVERY
     Route: 030
     Dates: start: 20020114

REACTIONS (22)
  - ALANINE AMINOTRANSFERASE ABNORMAL [None]
  - ASPARTATE AMINOTRANSFERASE ABNORMAL [None]
  - ASTHENIA [None]
  - BLOOD BILIRUBIN [None]
  - BLOOD CREATINE PHOSPHOKINASE ABNORMAL [None]
  - CONSTIPATION [None]
  - DIZZINESS [None]
  - DRY EYE [None]
  - DRY MOUTH [None]
  - DYSGEUSIA [None]
  - FATIGUE [None]
  - HAEMOGLOBIN ABNORMAL [None]
  - HEADACHE [None]
  - HOT FLUSH [None]
  - HYPONATRAEMIA [None]
  - HYPOTHYROIDISM [None]
  - LETHARGY [None]
  - MALAISE [None]
  - MUSCLE SPASMS [None]
  - OEDEMA [None]
  - PAIN [None]
  - PERIPHERAL SENSORY NEUROPATHY [None]
